FAERS Safety Report 6947007-8 (Version None)
Quarter: 2010Q3

REPORT INFORMATION
  Report Type: 
  Country: None (occurrence: None)
  Receive Date: 20100825
  Receipt Date: 20100811
  Transmission Date: 20110219
  Serious: Yes (Other)
  Sender: FDA-Public Use
  Company Number: 1000015768

PATIENT
  Age: 58 Year
  Sex: Female
  Weight: 59 kg

DRUGS (1)
  1. ESCITALOPRAM [Suspect]
     Indication: DEPRESSION
     Dosage: 5 MG (5 MG,1 IN 1 D) ORAL; 10 MG (10 MG,1 IN 1 D) ORAL
     Route: 048
     Dates: start: 20090430

REACTIONS (3)
  - HAEMATURIA [None]
  - KIDNEY ENLARGEMENT [None]
  - PROTEINURIA [None]
